FAERS Safety Report 7823545-0 (Version None)
Quarter: 2011Q4

REPORT INFORMATION
  Report Type: 
  Country: None (occurrence: None)
  Receive Date: 20111019
  Receipt Date: 20111011
  Transmission Date: 20120403
  Serious: Yes (Hospitalization, Other)
  Sender: FDA-Public Use
  Company Number: DE-JNJFOC-20110910703

PATIENT
  Age: 43 Year
  Sex: Male

DRUGS (7)
  1. ANTIBIOTICS [Concomitant]
  2. ARCOXIA [Concomitant]
  3. PREDNISOLONE [Concomitant]
  4. ERGOCALCIFEROL [Concomitant]
  5. SIMPONI [Suspect]
     Indication: ANKYLOSING SPONDYLITIS
     Route: 058
     Dates: start: 20101001, end: 20110901
  6. ENBREL [Concomitant]
     Dates: start: 20110101
  7. ALL OTHER THERAPEUTIC DRUGS [Concomitant]

REACTIONS (2)
  - TOOTH LOSS [None]
  - PSORIASIS [None]
